FAERS Safety Report 13056757 (Version 1)
Quarter: 2016Q4

REPORT INFORMATION
  Report Type: Spontaneous
  Country: US (occurrence: US)
  Receive Date: 20161222
  Receipt Date: 20161222
  Transmission Date: 20170207
  Serious: No
  Sender: FDA-Public Use
  Company Number: US-BIOMARINAP-US-2015-107925

PATIENT
  Sex: Female

DRUGS (1)
  1. ALDURAZYME [Suspect]
     Active Substance: LARONIDASE
     Indication: MUCOPOLYSACCHARIDOSIS I
     Dosage: 0.54 MG/KG, QW
     Route: 041
     Dates: start: 200505

REACTIONS (4)
  - Injury [Not Recovered/Not Resolved]
  - Fall [Unknown]
  - Dysstasia [Unknown]
  - Contusion [Recovered/Resolved]
